FAERS Safety Report 4501530-4 (Version None)
Quarter: 2004Q4

REPORT INFORMATION
  Report Type: 
  Country: None (occurrence: None)
  Receive Date: 20041115
  Receipt Date: 20041109
  Transmission Date: 20050328
  Serious: Yes (Hospitalization, Disabling)
  Sender: FDA-Public Use
  Company Number: US-MERCK-0411USA01703

PATIENT
  Age: 50 Year
  Sex: Female

DRUGS (1)
  1. VIOXX [Suspect]
     Indication: ARTHRALGIA
     Route: 048
     Dates: start: 20040401, end: 20040901

REACTIONS (6)
  - ADVERSE EVENT [None]
  - CHEST PAIN [None]
  - DYSPNOEA [None]
  - NECK PAIN [None]
  - PAIN IN EXTREMITY [None]
  - PALLOR [None]
